FAERS Safety Report 22625809 (Version 1)
Quarter: 2023Q2

REPORT INFORMATION
  Report Type: Spontaneous
  Country: CN (occurrence: CN)
  Receive Date: 20230621
  Receipt Date: 20230621
  Transmission Date: 20230722
  Serious: Yes (Other)
  Sender: FDA-Public Use
  Company Number: CN-ELI_LILLY_AND_COMPANY-CN202306008503

PATIENT
  Age: 69 Year
  Sex: Female

DRUGS (3)
  1. BARICITINIB [Suspect]
     Active Substance: BARICITINIB
     Indication: Pneumonia viral
     Dosage: 4 MG, DAILY
     Route: 048
     Dates: start: 20230206, end: 20230218
  2. BUMETANIDE [Suspect]
     Active Substance: BUMETANIDE
     Indication: Dyspnoea
     Dosage: 1 MG, DAILY
     Route: 042
     Dates: start: 20230206, end: 20230217
  3. PIPERACILLIN AND TAZOBACTAM [Concomitant]
     Active Substance: PIPERACILLIN SODIUM\TAZOBACTAM SODIUM
     Indication: Pneumonia bacterial
     Dosage: 5 MG, BID
     Route: 042
     Dates: start: 20230206, end: 20230210

REACTIONS (3)
  - Renal impairment [Recovering/Resolving]
  - Hepatic enzyme increased [Recovering/Resolving]
  - Off label use [Unknown]

NARRATIVE: CASE EVENT DATE: 20230206
